FAERS Safety Report 5771511-1 (Version None)
Quarter: 2008Q2

REPORT INFORMATION
  Report Type: 
  Country: None (occurrence: None)
  Receive Date: 20080612
  Receipt Date: 20080612
  Transmission Date: 20081010
  Serious: Yes (Death)
  Sender: FDA-Public Use
  Company Number: None

PATIENT
  Age: 41 Year
  Sex: Female
  Weight: 49.8957 kg

DRUGS (1)
  1. KEPPRA [Suspect]
     Indication: CONVULSION
     Dosage: 500MG 2 TIMES PER DAY PO
     Route: 048
     Dates: start: 20061220, end: 20070630

REACTIONS (7)
  - APHASIA [None]
  - BLINDNESS [None]
  - BRAIN OEDEMA [None]
  - HEMIPARESIS [None]
  - HEMIPLEGIA [None]
  - LYMPHOEDEMA [None]
  - PAPILLOEDEMA [None]
